FAERS Safety Report 13393215 (Version 1)
Quarter: 2017Q1

REPORT INFORMATION
  Report Type: Spontaneous
  Country: US (occurrence: US)
  Receive Date: 20170331
  Receipt Date: 20170331
  Transmission Date: 20170429
  Serious: Yes (Life-Threatening, Hospitalization, Other)
  Sender: FDA-Public Use
  Company Number: US-SAOL THERAPEUTICS-0700284550

PATIENT
  Sex: Male

DRUGS (6)
  1. BUPIVACAINE. [Suspect]
     Active Substance: BUPIVACAINE
     Route: 037
  2. REQUIP [Concomitant]
     Active Substance: ROPINIROLE HYDROCHLORIDE
     Dosage: 1 MG, UNK
  3. COMPOUNDED BACLOFEN [Suspect]
     Active Substance: BACLOFEN
     Dosage: UNK
     Route: 037
  4. MOPRHINE [Suspect]
     Active Substance: MORPHINE
     Dosage: UNK
     Route: 037
  5. CLONIDINE. [Suspect]
     Active Substance: CLONIDINE
     Route: 037
  6. CYMBALTA [Concomitant]
     Active Substance: DULOXETINE HYDROCHLORIDE

REACTIONS (12)
  - Insomnia [Unknown]
  - Formication [Unknown]
  - Tremor [Unknown]
  - Muscle twitching [Unknown]
  - Drug withdrawal syndrome [Unknown]
  - Restless legs syndrome [Unknown]
  - Dyskinesia [Unknown]
  - Intercepted medication error [Unknown]
  - Device failure [Unknown]
  - Respiratory arrest [Unknown]
  - Overdose [Unknown]
  - Suicidal ideation [Unknown]
